FAERS Safety Report 9639994 (Version 2)
Quarter: 2013Q4

REPORT INFORMATION
  Report Type: Report from Study
  Country: AU (occurrence: AU)
  Receive Date: 20131023
  Receipt Date: 20131023
  Transmission Date: 20140711
  Serious: Yes (Other)
  Sender: FDA-Public Use
  Company Number: PHHY2013AU064957

PATIENT
  Sex: Female

DRUGS (30)
  1. ACLASTA [Suspect]
     Indication: OSTEOPOROSIS
     Dosage: 5MG/100ML YEARLY
     Route: 042
     Dates: start: 20120517
  2. ACLASTA [Suspect]
     Dosage: 5MG/100ML YEARLY
     Route: 042
     Dates: start: 20131015
  3. ALDACTONE [Concomitant]
     Dosage: 1 DF, BID
     Route: 048
  4. AMITRIPTYLINE HCL [Concomitant]
     Dosage: 1 - 2 NOCTE PRN
     Route: 048
  5. CHOLECALCIFEROL [Concomitant]
     Dosage: 2 DF, MANE
     Route: 048
  6. CHOLECALCIFEROL [Concomitant]
     Dosage: 6000 U, DAILY
  7. CHOLECALCIFEROL [Concomitant]
     Dosage: 50000 U, THREE TIMES A WEEK
  8. CODEINE PHOSPHATE [Concomitant]
     Dosage: 1 DF, QID
     Route: 048
  9. CODEINE PHOSPHATE [Concomitant]
     Dosage: 1 DF, PRN
  10. CREON [Concomitant]
     Dosage: 1 DF, TID
     Route: 048
  11. CREON [Concomitant]
     Dosage: 25000 U, 6 TIME A DAY, WITH FREQUENT MEAL
  12. ENDONE [Concomitant]
     Dosage: 1 DF, BID (PRN)
     Route: 048
  13. FERRUM [Concomitant]
     Dosage: 100MG/2ML
     Route: 030
  14. FRUSEMIDE [Concomitant]
     Dosage: 2 DF, BID (1 MANE AND 1 NOON)
     Route: 048
  15. LACTULOSE [Concomitant]
     Dosage: 15 ML, BID
     Route: 048
  16. METOCLOPRAMIDE [Concomitant]
     Dosage: 1 DF, TID
  17. MULTI VITAMIN + MINERAL [Concomitant]
     Dosage: 1 DF, BID
  18. NEO B12 [Concomitant]
     Dosage: 1 DF, MONTHLY
     Route: 030
  19. OMEPRAZOLE [Concomitant]
     Dosage: 2 DF, BID
  20. PRISTIQ [Concomitant]
     Dosage: 1 DF, MANE
     Route: 048
  21. THIAMIN HCL [Concomitant]
     Dosage: 1 DF, BID
     Route: 048
  22. CITALOPRAM [Concomitant]
     Dosage: 20 MG, DAILY
  23. MULTI-VIT [Concomitant]
     Dosage: 1 DF, DAILY
  24. VITAMIN A [Concomitant]
     Dosage: 5000 U, DAILY
  25. VITAMIN A [Concomitant]
     Dosage: 10000 U, DAILY
  26. VITAMIN E [Concomitant]
     Dosage: 250 U, DAILY
  27. VITAMIN E [Concomitant]
     Dosage: 500 U, DAILY
  28. SELENIUM [Concomitant]
     Dosage: 1 DF, DAILY
  29. IBUPROFEN [Concomitant]
     Dosage: UNK
  30. IRON [Concomitant]
     Dosage: UNK UKN, UNK

REACTIONS (8)
  - Cirrhosis alcoholic [Unknown]
  - Vitamin D decreased [Recovered/Resolved]
  - Serum ferritin decreased [Recovered/Resolved]
  - Gastric ulcer [Unknown]
  - Gastrointestinal mucosal disorder [Unknown]
  - Cholelithiasis [Unknown]
  - Biliary dilatation [Unknown]
  - Musculoskeletal pain [Unknown]
